FAERS Safety Report 5855832-X (Version None)
Quarter: 2008Q3

REPORT INFORMATION
  Report Type: 
  Country: None (occurrence: None)
  Receive Date: 20080825
  Receipt Date: 20071019
  Transmission Date: 20090109
  Serious: No
  Sender: FDA-Public Use
  Company Number: A0688744A

PATIENT
  Age: 21 Year
  Sex: Female

DRUGS (5)
  1. MALARONE [Suspect]
     Indication: MALARIA PROPHYLAXIS
     Dosage: 250MG PER DAY
     Route: 048
     Dates: start: 20070101, end: 20070807
  2. YAZ [Concomitant]
  3. UNKNOWN MEDICATION [Concomitant]
  4. IMMUNOTHERAPY [Concomitant]
     Indication: POLIOMYELITIS
  5. IMMUNOTHERAPY [Concomitant]
     Indication: HEPATITIS

REACTIONS (1)
  - ALOPECIA [None]
